FAERS Safety Report 6647081-2 (Version None)
Quarter: 2010Q1

REPORT INFORMATION
  Report Type: 
  Country: None (occurrence: None)
  Receive Date: 20100323
  Receipt Date: 20100310
  Transmission Date: 20100710
  Serious: Yes (Other)
  Sender: FDA-Public Use
  Company Number: US-BAYER-201019397GPV

PATIENT

DRUGS (4)
  1. ASPIRIN [Suspect]
     Indication: THROMBOSIS PROPHYLAXIS
     Dosage: LOADING DOSE
  2. ASPIRIN [Suspect]
     Dosage: MAINTENANCE DOSE
  3. CLOPIDOGREL [Suspect]
     Indication: THROMBOSIS PROPHYLAXIS
     Dosage: LOADING DOSE
  4. CLOPIDOGREL [Suspect]
     Dosage: MAINTENANCE DOSE

REACTIONS (1)
  - SUBARACHNOID HAEMORRHAGE [None]
